FAERS Safety Report 6253665-6 (Version None)
Quarter: 2009Q3

REPORT INFORMATION
  Report Type: 
  Country: None (occurrence: None)
  Receive Date: 20090701
  Receipt Date: 20090624
  Transmission Date: 20100115
  Serious: Yes (Hospitalization, Other)
  Sender: FDA-Public Use
  Company Number: US-CVT-090386

PATIENT

DRUGS (15)
  1. RANEXA [Suspect]
     Indication: ANGINA PECTORIS
     Dosage: 500 MG, BID
     Route: 048
     Dates: start: 20080601, end: 20090501
  2. RANEXA [Suspect]
     Dosage: 1000 MG, BID
     Route: 048
     Dates: start: 20090502, end: 20090619
  3. SOTALOL                            /00371501/ [Concomitant]
  4. AMIODARONE                         /00133101/ [Concomitant]
     Dates: start: 20090502
  5. NEXIUM [Concomitant]
  6. GLUCOPHAGE [Concomitant]
  7. GLIMEPIRIDE [Concomitant]
  8. ISOSORBIDE [Concomitant]
  9. ASPIRIN [Concomitant]
     Dosage: 81 MG, UNK
  10. METOPROLOL                         /00376901/ [Concomitant]
  11. ZETIA [Concomitant]
  12. PRINIVIL [Concomitant]
  13. LIPITOR                            /01326101/ [Concomitant]
  14. PLAVIX [Concomitant]
  15. NORVASC [Concomitant]

REACTIONS (3)
  - MYOCARDIAL INFARCTION [None]
  - TINNITUS [None]
  - VENTRICULAR TACHYCARDIA [None]
